FAERS Safety Report 6336775-4 (Version None)
Quarter: 2009Q3

REPORT INFORMATION
  Report Type: 
  Country: None (occurrence: None)
  Receive Date: 20090828
  Receipt Date: 20090828
  Transmission Date: 20100115
  Serious: Yes (Hospitalization)
  Sender: FDA-Public Use
  Company Number: None

PATIENT
  Sex: Male
  Weight: 109.8 kg

DRUGS (3)
  1. METHOTREXATE [Suspect]
     Dosage: 1980 MG
  2. PEG-L- ASPARAGINASE (K-H) [Suspect]
     Dosage: 11600 IU
  3. VINCRISTINE SULFATE [Suspect]
     Dosage: 10 MG

REACTIONS (16)
  - ACIDOSIS [None]
  - BRONCHOSCOPY ABNORMAL [None]
  - CARDIAC ARREST [None]
  - COMA [None]
  - DEHYDRATION [None]
  - ENCEPHALOPATHY [None]
  - HYPERBILIRUBINAEMIA [None]
  - HYPOTENSION [None]
  - MUCORMYCOSIS [None]
  - MUCOSAL INFLAMMATION [None]
  - MULTI-ORGAN FAILURE [None]
  - NO THERAPEUTIC RESPONSE [None]
  - PANCYTOPENIA [None]
  - RENAL FAILURE [None]
  - THERAPEUTIC AGENT TOXICITY [None]
  - VENTRICULAR TACHYCARDIA [None]
